FAERS Safety Report 11086870 (Version 1)
Quarter: 2015Q2

REPORT INFORMATION
  Report Type: Report from Study
  Country: IT (occurrence: IT)
  Receive Date: 20150504
  Receipt Date: 20150504
  Transmission Date: 20150821
  Serious: Yes (Other)
  Sender: FDA-Public Use
  Company Number: IT-JNJFOC-20150114711

PATIENT
  Age: 48 Year
  Sex: Male
  Weight: 67 kg

DRUGS (6)
  1. SIMEPREVIR [Suspect]
     Active Substance: SIMEPREVIR
     Indication: HEPATITIS C
     Route: 048
     Dates: start: 20141222, end: 20150120
  2. SOVALDI [Concomitant]
     Active Substance: SOFOSBUVIR
     Indication: HEPATITIS C
     Route: 048
     Dates: start: 20141222
  3. RIFAXIMIN [Concomitant]
     Active Substance: RIFAXIMIN
     Indication: HEPATIC ENCEPHALOPATHY
     Route: 048
     Dates: start: 201410
  4. SPIRONOLACTONE. [Concomitant]
     Active Substance: SPIRONOLACTONE
     Indication: ASCITES
     Dosage: 100  (UNITS UNSPCIFIED)
     Route: 048
     Dates: start: 20141022
  5. FUROSEMIDE. [Concomitant]
     Active Substance: FUROSEMIDE
     Indication: ASCITES
     Route: 048
     Dates: start: 20141022
  6. CARVEDILOL. [Concomitant]
     Active Substance: CARVEDILOL
     Indication: VARICOSE VEIN
     Dosage: 6.25 (UNITS UNSPCIFIED)
     Route: 048
     Dates: start: 20141022

REACTIONS (2)
  - Liver disorder [Not Recovered/Not Resolved]
  - Hyperbilirubinaemia [Recovering/Resolving]

NARRATIVE: CASE EVENT DATE: 20150120
